FAERS Safety Report 19190839 (Version 1)
Quarter: 2021Q2

REPORT INFORMATION
  Report Type: Spontaneous
  Country: RO (occurrence: RO)
  Receive Date: 20210428
  Receipt Date: 20210428
  Transmission Date: 20210717
  Serious: Yes (Other)
  Sender: FDA-Public Use
  Company Number: RO-ROCHE-2815221

PATIENT
  Age: 79 Year
  Sex: Female

DRUGS (4)
  1. GAZYVARO [Suspect]
     Active Substance: OBINUTUZUMAB
     Indication: CHRONIC LYMPHOCYTIC LEUKAEMIA
     Route: 042
  2. CHLORAMBUCIL [Suspect]
     Active Substance: CHLORAMBUCIL
     Indication: CHRONIC LYMPHOCYTIC LEUKAEMIA
     Route: 065
  3. TERTENSIF [Concomitant]
     Active Substance: INDAPAMIDE
  4. PRESTARIUM [Concomitant]
     Active Substance: PERINDOPRIL

REACTIONS (4)
  - Neuralgia [Unknown]
  - Paraesthesia [Unknown]
  - Thrombocytopenia [Unknown]
  - Neutropenia [Unknown]
